FAERS Safety Report 20846548 (Version 1)
Quarter: 2022Q2

REPORT INFORMATION
  Report Type: Report from Study
  Country: BR (occurrence: BR)
  Receive Date: 20220518
  Receipt Date: 20220518
  Transmission Date: 20220721
  Serious: Yes (Hospitalization)
  Sender: FDA-Public Use
  Company Number: BR-ABBVIE-22K-020-4398549-00

PATIENT
  Sex: Female
  Weight: 82 kg

DRUGS (1)
  1. RINVOQ [Suspect]
     Active Substance: UPADACITINIB
     Indication: Rheumatoid arthritis
     Route: 048
     Dates: start: 20220105

REACTIONS (2)
  - Fall [Recovering/Resolving]
  - Tendon rupture [Unknown]

NARRATIVE: CASE EVENT DATE: 20220101
